FAERS Safety Report 4371166-7 (Version None)
Quarter: 2004Q2

REPORT INFORMATION
  Report Type: 
  Country: None (occurrence: None)
  Receive Date: 20040604
  Receipt Date: 20040212
  Transmission Date: 20050107
  Serious: Yes (Disabling)
  Sender: FDA-Public Use
  Company Number: CA-ROCHE-358950

PATIENT
  Age: 19 Year
  Sex: Female

DRUGS (2)
  1. ACCUTANE [Suspect]
     Indication: ACNE
     Route: 048
     Dates: start: 20030715
  2. ACCUTANE [Suspect]
     Route: 048
     Dates: end: 20040101

REACTIONS (4)
  - DRY SKIN [None]
  - ERYTHEMA [None]
  - VAGINAL DISORDER [None]
  - VULVOVAGINAL DRYNESS [None]
